FAERS Safety Report 4502996-6 (Version None)
Quarter: 2004Q4

REPORT INFORMATION
  Report Type: 
  Country: None (occurrence: None)
  Receive Date: 20041116
  Receipt Date: 20041116
  Transmission Date: 20050328
  Serious: Yes (Death, Hospitalization)
  Sender: FDA-Public Use
  Company Number: None

PATIENT
  Age: 63 Year
  Sex: Male

DRUGS (4)
  1. AVASTIN [Suspect]
  2. FLUOROURACIL [Concomitant]
  3. IRINIOTECAN [Concomitant]
  4. LEUCOVORIN [Concomitant]

REACTIONS (6)
  - ABDOMINAL PAIN [None]
  - DIARRHOEA [None]
  - FATIGUE [None]
  - LETHARGY [None]
  - MELAENA [None]
  - WEIGHT DECREASED [None]
